FAERS Safety Report 15382392 (Version 1)
Quarter: 2018Q3

REPORT INFORMATION
  Report Type: Spontaneous
  Country: CA (occurrence: CA)
  Receive Date: 20180913
  Receipt Date: 20180913
  Transmission Date: 20181010
  Serious: Yes (Hospitalization)
  Sender: FDA-Public Use
  Company Number: CA-PFIZER INC-002-0945-990003

PATIENT
  Age: 69 Year
  Sex: Male
  Weight: 75 kg

DRUGS (16)
  1. NORVASC [Concomitant]
     Active Substance: AMLODIPINE BESYLATE
     Dosage: UNK
     Route: 065
     Dates: start: 19980420
  2. LOVASTATIN. [Suspect]
     Active Substance: LOVASTATIN
     Indication: HYPERLIPIDAEMIA
     Dosage: 20 MG, 1X/DAY
     Route: 048
     Dates: start: 19980625, end: 19990111
  3. TYLENOL EXTRA STRENGTH [Concomitant]
     Active Substance: ACETAMINOPHEN
     Dosage: 500 MG, UNK
     Route: 065
     Dates: start: 19980420
  4. GABAPENTIN. [Suspect]
     Active Substance: GABAPENTIN
     Indication: NEURALGIA
     Dosage: 300 MG, 3X/DAY
     Route: 048
     Dates: start: 19981218, end: 19990111
  5. CALCIUM CARBONATE. [Concomitant]
     Active Substance: CALCIUM CARBONATE
     Dosage: UNK
     Route: 065
     Dates: start: 19980923
  6. DULCOLAX (BISACODYL) [Concomitant]
     Active Substance: BISACODYL
     Dosage: UNK
     Route: 065
     Dates: start: 19980424
  7. ATENOLOL. [Concomitant]
     Active Substance: ATENOLOL
     Indication: BLOOD PRESSURE MEASUREMENT
     Dosage: UNK
     Route: 065
     Dates: start: 19970625
  8. LACTULOSE. [Concomitant]
     Active Substance: LACTULOSE
     Dosage: UNK
     Route: 065
     Dates: start: 19980518
  9. ATASOL [PARACETAMOL] [Concomitant]
     Dosage: 325 MG, UNK
     Route: 065
     Dates: start: 19981120
  10. COLACE [Concomitant]
     Active Substance: DOCUSATE SODIUM
     Dosage: UNK
     Route: 065
     Dates: start: 19981120
  11. NITROGLYCERIN. [Concomitant]
     Active Substance: NITROGLYCERIN
     Dosage: UNK
     Route: 062
     Dates: start: 19980420
  12. ROCALTROL [Concomitant]
     Active Substance: CALCITRIOL
     Dosage: UNK
     Route: 065
     Dates: start: 19980508
  13. LOSEC [OMEPRAZOLE] [Concomitant]
     Dosage: UNK
     Route: 065
     Dates: start: 19990112
  14. RESTORIL [TEMAZEPAM] [Concomitant]
     Dosage: UNK
     Route: 065
     Dates: start: 19980420
  15. EPREX [Concomitant]
     Active Substance: ERYTHROPOIETIN
     Dosage: UNK
     Route: 065
     Dates: start: 19980710
  16. PENTA VITE [Concomitant]
     Dosage: UNK
     Dates: start: 19980420

REACTIONS (10)
  - Pleural effusion [Unknown]
  - Musculoskeletal stiffness [Unknown]
  - Confusional state [Unknown]
  - Asthenia [Unknown]
  - Chest pain [Unknown]
  - Somnolence [Unknown]
  - Hypokinesia [Recovered/Resolved]
  - Cough [Unknown]
  - Blood creatine phosphokinase increased [Recovered/Resolved]
  - Diarrhoea [Unknown]

NARRATIVE: CASE EVENT DATE: 19990108
